FAERS Safety Report 12250836 (Version 1)
Quarter: 2016Q2

REPORT INFORMATION
  Report Type: Spontaneous
  Country: US (occurrence: US)
  Receive Date: 20160408
  Receipt Date: 20160408
  Transmission Date: 20160815
  Serious: No
  Sender: FDA-Public Use
  Company Number: US-009507513-1604USA001103

PATIENT
  Age: 54 Year
  Sex: Female

DRUGS (3)
  1. IDARUBICIN HYDROCHLORIDE. [Concomitant]
     Active Substance: IDARUBICIN HYDROCHLORIDE
  2. CYTARABINE. [Concomitant]
     Active Substance: CYTARABINE
  3. ZOLINZA [Suspect]
     Active Substance: VORINOSTAT
     Route: 048

REACTIONS (1)
  - Herpes virus infection [Recovered/Resolved]
